FAERS Safety Report 7166581-2 (Version None)
Quarter: 2010Q4

REPORT INFORMATION
  Report Type: 
  Country: None (occurrence: None)
  Receive Date: 20101216
  Receipt Date: 20101213
  Transmission Date: 20110411
  Serious: Yes (Other)
  Sender: FDA-Public Use
  Company Number: PT-PFIZER INC-2010171067

PATIENT
  Age: 48 Year
  Sex: Male

DRUGS (2)
  1. CHAMPIX [Suspect]
     Dosage: UNK
  2. ATORVASTATIN [Concomitant]
     Dosage: UNK

REACTIONS (2)
  - DEHYDRATION [None]
  - DIARRHOEA [None]
